FAERS Safety Report 5865498-0 (Version None)
Quarter: 2008Q3

REPORT INFORMATION
  Report Type: 
  Country: None (occurrence: None)
  Receive Date: 20080829
  Receipt Date: 20080828
  Transmission Date: 20090109
  Serious: Yes (Congenital Anomaly)
  Sender: FDA-Public Use
  Company Number: GB-BRISTOL-MYERS SQUIBB COMPANY-14311955

PATIENT
  Sex: Female

DRUGS (7)
  1. EFAVIRENZ [Suspect]
  2. KIVEXA [Suspect]
  3. LAMIVUDINE [Suspect]
  4. LOPINAVIR [Suspect]
  5. RITONAVIR [Suspect]
  6. VIRAMUNE [Suspect]
  7. ZIDOVUDINE [Suspect]

REACTIONS (5)
  - CARDIAC MALPOSITION [None]
  - CONGENITAL DIAPHRAGMATIC ANOMALY [None]
  - HEPATIC DISPLACEMENT [None]
  - PNEUMOTHORAX [None]
  - PREGNANCY [None]
